FAERS Safety Report 8121496-8 (Version None)
Quarter: 2012Q1

REPORT INFORMATION
  Report Type: 
  Country: None (occurrence: None)
  Receive Date: 20120208
  Receipt Date: 20120202
  Transmission Date: 20120608
  Serious: No
  Sender: FDA-Public Use
  Company Number: US-PFIZER INC-2012030164

PATIENT
  Sex: Female
  Weight: 106.12 kg

DRUGS (4)
  1. SEPTRA [Suspect]
     Dosage: UNK
  2. PENICILLIN G POTASSIUM [Suspect]
     Dosage: UNK
  3. OFLOXACIN [Suspect]
     Dosage: UNK
  4. AMOXICILLIN [Suspect]
     Dosage: UNK

REACTIONS (1)
  - DRUG HYPERSENSITIVITY [None]
